FAERS Safety Report 6608778-3 (Version None)
Quarter: 2010Q1

REPORT INFORMATION
  Report Type: 
  Country: None (occurrence: None)
  Receive Date: 20100301
  Receipt Date: 20100225
  Transmission Date: 20100710
  Serious: Yes (Death, Other)
  Sender: FDA-Public Use
  Company Number: US-ASTRAZENECA-2010SE08266

PATIENT
  Age: 60 Year

DRUGS (2)
  1. SEROQUEL [Suspect]
     Indication: BIPOLAR DISORDER
     Route: 048
  2. NORCO [Concomitant]

REACTIONS (3)
  - DEMENTIA [None]
  - RENAL FAILURE [None]
  - SUDDEN CARDIAC DEATH [None]
